FAERS Safety Report 16462212 (Version 1)
Quarter: 2019Q2

REPORT INFORMATION
  Report Type: Report from Study
  Country: US (occurrence: US)
  Receive Date: 20190621
  Receipt Date: 20190621
  Transmission Date: 20190711
  Serious: No
  Sender: FDA-Public Use
  Company Number: US-KYOWAKIRIN-2019BKK009498

PATIENT

DRUGS (1)
  1. GRANISETRON [Suspect]
     Active Substance: GRANISETRON
     Indication: PRODUCT USED FOR UNKNOWN INDICATION
     Dosage: APPLY 1 PATCH IN THE MORNING OF CHEMOTHERAPY
     Route: 061

REACTIONS (2)
  - Inappropriate schedule of product administration [Unknown]
  - Product adhesion issue [Unknown]
